FAERS Safety Report 15276459 (Version 1)
Quarter: 2018Q3

REPORT INFORMATION
  Report Type: Spontaneous
  Country: CA (occurrence: CA)
  Receive Date: 20180814
  Receipt Date: 20180814
  Transmission Date: 20181010
  Serious: Yes (Hospitalization, Other)
  Sender: FDA-Public Use
  Company Number: CA-IPSEN BIOPHARMACEUTICALS, INC.-2018-11703

PATIENT
  Age: 76 Year
  Sex: Male
  Weight: 86 kg

DRUGS (14)
  1. VITAMIN D [Concomitant]
     Active Substance: CHOLECALCIFEROL
     Indication: ROUTINE HEALTH MAINTENANCE
     Route: 048
     Dates: start: 2014
  2. LANREOTIDE AUTOGEL [Suspect]
     Active Substance: LANREOTIDE
     Indication: NEUROENDOCRINE CARCINOMA
     Dosage: 120 MG
     Route: 058
     Dates: start: 20160408
  3. METFORMIN [Concomitant]
     Active Substance: METFORMIN HYDROCHLORIDE
     Indication: DIABETES MELLITUS
     Route: 048
     Dates: start: 20170801
  4. VICTOZA [Concomitant]
     Active Substance: LIRAGLUTIDE
     Indication: TYPE 2 DIABETES MELLITUS
     Route: 048
     Dates: start: 2012
  5. VITAMIN B5 [Concomitant]
     Active Substance: PANTOTHENIC ACID
     Indication: ROUTINE HEALTH MAINTENANCE
     Route: 048
     Dates: start: 2014
  6. NITROGLYCERINE SPRAY [Concomitant]
     Indication: ANGINA PECTORIS
     Route: 060
     Dates: start: 201508
  7. INVOKANA [Concomitant]
     Active Substance: CANAGLIFLOZIN
     Indication: TYPE 2 DIABETES MELLITUS
     Route: 048
     Dates: start: 20180214
  8. HYDROMORPHONE CONTIN [Concomitant]
     Active Substance: HYDROMORPHONE HYDROCHLORIDE
     Indication: PAIN
     Route: 048
     Dates: start: 20180131
  9. HUMALOG [Concomitant]
     Active Substance: INSULIN LISPRO
     Indication: TYPE 2 DIABETES MELLITUS
     Route: 058
     Dates: start: 2004
  10. ATORVASTATIN [Concomitant]
     Active Substance: ATORVASTATIN
     Indication: HYPERCHOLESTEROLAEMIA
     Route: 048
     Dates: start: 2009
  11. LANTUS [Concomitant]
     Active Substance: INSULIN GLARGINE
     Indication: TYPE 2 DIABETES MELLITUS
     Route: 058
     Dates: start: 201801
  12. DILAUDID [Concomitant]
     Active Substance: HYDROMORPHONE HYDROCHLORIDE
     Indication: PAIN
     Dates: start: 20180214
  13. LX1606 [Concomitant]
     Indication: CARCINOID SYNDROME
     Route: 048
     Dates: start: 20160113
  14. METOPROLOL TARTRATE. [Concomitant]
     Active Substance: METOPROLOL TARTRATE
     Indication: ANGINA PECTORIS
     Route: 048
     Dates: start: 20171026

REACTIONS (19)
  - Hyperkalaemia [Unknown]
  - Road traffic accident [Unknown]
  - Motor dysfunction [Unknown]
  - Device failure [Recovered/Resolved]
  - Spinal decompression [Unknown]
  - Spinal corpectomy [Unknown]
  - Procedural complication [Unknown]
  - Inappropriate schedule of drug administration [Unknown]
  - Spinal fusion surgery [Recovered/Resolved]
  - Pain in extremity [Recovering/Resolving]
  - Neck pain [Recovering/Resolving]
  - Blood creatinine increased [Unknown]
  - Muscular weakness [Unknown]
  - Spinal decompression [Recovering/Resolving]
  - Eczema [Unknown]
  - Device breakage [Unknown]
  - Spinal fusion surgery [Recovering/Resolving]
  - Hypothyroidism [Unknown]
  - Peripheral sensory neuropathy [Unknown]

NARRATIVE: CASE EVENT DATE: 20171005
